FAERS Safety Report 10146190 (Version 2)
Quarter: 2014Q2

REPORT INFORMATION
  Report Type: Spontaneous
  Country: GR (occurrence: GR)
  Receive Date: 20140501
  Receipt Date: 20140501
  Transmission Date: 20141212
  Serious: Yes (Other)
  Sender: FDA-Public Use
  Company Number: GR-NOVOPROD-388245

PATIENT
  Age: 46 Year
  Sex: Female
  Weight: 75 kg

DRUGS (1)
  1. PROTAPHANE PENFILL [Suspect]
     Indication: GESTATIONAL DIABETES
     Dosage: 14 IU, QD
     Route: 058
     Dates: start: 20130907

REACTIONS (3)
  - Blood pressure increased [Unknown]
  - Premature delivery [Recovered/Resolved]
  - Exposure during pregnancy [Recovered/Resolved]
